FAERS Safety Report 4460942-8 (Version None)
Quarter: 2004Q3

REPORT INFORMATION
  Report Type: 
  Country: None (occurrence: None)
  Receive Date: 20040928
  Receipt Date: 20040614
  Transmission Date: 20050211
  Serious: No
  Sender: FDA-Public Use
  Company Number: US-GLAXOSMITHKLINE-A0514526A

PATIENT
  Age: 74 Year
  Sex: Male

DRUGS (9)
  1. ADVAIR DISKUS 100/50 [Suspect]
     Indication: ILL-DEFINED DISORDER
     Dosage: 1PUFF TWICE PER DAY
     Route: 055
  2. PREDNISONE [Concomitant]
  3. ZANTAC [Concomitant]
  4. SPIRONOLACTONE [Concomitant]
  5. LASIX [Concomitant]
  6. COUMADIN [Concomitant]
  7. CARDURA [Concomitant]
  8. DIGOXIN [Concomitant]
  9. DILTIAZEM [Concomitant]

REACTIONS (1)
  - ORAL CANDIDIASIS [None]
